FAERS Safety Report 22060400 (Version 5)
Quarter: 2023Q2

REPORT INFORMATION
  Report Type: Spontaneous
  Country: CZ (occurrence: CZ)
  Receive Date: 20230303
  Receipt Date: 20230607
  Transmission Date: 20230721
  Serious: Yes (Death, Other)
  Sender: FDA-Public Use
  Company Number: CZ-ROCHE-3291779

PATIENT
  Age: 51 Year
  Sex: Male

DRUGS (17)
  1. RITUXIMAB [Suspect]
     Active Substance: RITUXIMAB
     Indication: Chronic myeloid leukaemia
     Dosage: 100 MG, DAY 1 OF CHEMOTHERAPY
     Route: 065
     Dates: start: 2014
  2. RITUXIMAB [Suspect]
     Active Substance: RITUXIMAB
     Dosage: 200 MG, DAY 2 OF CHEMOTHERAPY
     Route: 065
     Dates: start: 2014
  3. RITUXIMAB [Suspect]
     Active Substance: RITUXIMAB
     Dosage: 400 MG, DAY 3 OF CHEMOTHERAPY
     Route: 065
     Dates: start: 2014
  4. METHOTREXATE [Suspect]
     Active Substance: METHOTREXATE
     Indication: Chronic myeloid leukaemia
     Dosage: 2ND, 31ST, AND 33RD DAYS OF CHEMOTHERAPY
     Route: 037
     Dates: start: 2014
  5. METHOTREXATE [Suspect]
     Active Substance: METHOTREXATE
     Indication: Nervous system disorder prophylaxis
  6. IMATINIB [Suspect]
     Active Substance: IMATINIB
     Indication: Chronic myeloid leukaemia
     Dosage: 400 MG, UNKNOWN
     Route: 065
     Dates: start: 2014
  7. CYTARABINE [Suspect]
     Active Substance: CYTARABINE
     Indication: Chronic myeloid leukaemia
     Dosage: 2ND, 31ST, AND 33RD DAYS OF CHEMOTHERAPY
     Route: 037
     Dates: start: 2014
  8. CYTARABINE [Suspect]
     Active Substance: CYTARABINE
     Indication: Nervous system disorder prophylaxis
  9. VINCRISTINE [Suspect]
     Active Substance: VINCRISTINE
     Indication: Chronic myeloid leukaemia
     Dosage: 4 MG, CYCLIC (2 MG, QD DAYS 7 AND 14 OF CHEMOTHERAPY)
     Route: 065
     Dates: start: 2014
  10. CYCLOPHOSPHAMIDE [Suspect]
     Active Substance: CYCLOPHOSPHAMIDE
     Indication: Chronic myeloid leukaemia
     Dosage: 1080 MG, CYCLIC (360 MG, QD DAYS 4-6 OF CHEMOTHERAPY)
     Route: 065
     Dates: start: 2014
  11. ASPARAGINASE [Suspect]
     Active Substance: ASPARAGINASE
     Indication: Chronic myeloid leukaemia
     Dosage: 9000 IE; DAYS 17 AND 25 OF CHEMOTHERAPYCLIC
     Route: 065
     Dates: start: 2014
  12. INTERFERON ALFA-2A [Suspect]
     Active Substance: INTERFERON ALFA-2A
     Indication: Chronic myeloid leukaemia
     Dosage: 3 MILLION INTERNATIONAL UNIT, INTERVAL 0.5 WEEK
     Route: 065
     Dates: start: 201503
  13. DAUNORUBICIN HYDROCHLORIDE [Suspect]
     Active Substance: DAUNORUBICIN HYDROCHLORIDE
     Indication: Chronic myeloid leukaemia
     Dosage: 320 MG, CYCLIC (80 MG, QD DAYS 7-8 AND 14-15 OF CHEMOTHERAPY)
     Route: 065
     Dates: start: 2014
  14. DEXAMETHASONE [Suspect]
     Active Substance: DEXAMETHASONE
     Indication: Chronic myeloid leukaemia
     Dosage: 2ND, 31ST, AND 33RD DAYS OF CHEMOTHERAPY
     Route: 065
     Dates: start: 2014
  15. DEXAMETHASONE [Suspect]
     Active Substance: DEXAMETHASONE
     Indication: Nervous system disorder prophylaxis
  16. DASATINIB [Concomitant]
     Active Substance: DASATINIB
     Indication: Chronic myeloid leukaemia
     Dosage: 40 MG, QD FIVE TIMES PER WEEK.
     Route: 065
  17. GRANULOCYTE COLONY-STIMULATING FACTOR NOS [Concomitant]
     Active Substance: GRANULOCYTE COLONY-STIMULATING FACTOR NOS
     Indication: Neutropenia
     Dosage: 48 MICROGRAM 13 TIMES OVER EIGHT WEEKS
     Route: 065

REACTIONS (12)
  - Pneumonia influenzal [Fatal]
  - Cerebral toxoplasmosis [Recovering/Resolving]
  - Ileus [Unknown]
  - Mucosal inflammation [Unknown]
  - Pneumonia fungal [Unknown]
  - Pancreatitis acute [Unknown]
  - Liver disorder [Unknown]
  - Nephrotic syndrome [Unknown]
  - Renal failure [Unknown]
  - Weight decreased [Unknown]
  - Off label use [Unknown]
  - Intentional product use issue [Unknown]
